FAERS Safety Report 6449932-3 (Version None)
Quarter: 2009Q4

REPORT INFORMATION
  Report Type: 
  Country: None (occurrence: None)
  Receive Date: 20091123
  Receipt Date: 20091117
  Transmission Date: 20100525
  Serious: Yes (Death)
  Sender: FDA-Public Use
  Company Number: US-BIOGENIDEC-2009BI037377

PATIENT
  Age: 17 Year
  Sex: Male

DRUGS (3)
  1. TYSABRI [Suspect]
     Indication: MULTIPLE SCLEROSIS
     Dates: start: 20050131, end: 20050201
  2. TYSABRI [Suspect]
     Route: 042
     Dates: start: 20080327, end: 20081231
  3. TYSABRI [Suspect]
     Route: 042
     Dates: start: 20090714, end: 20091006

REACTIONS (3)
  - DEATH [None]
  - MULTIPLE SCLEROSIS [None]
  - PULMONARY OEDEMA [None]
